FAERS Safety Report 19350179 (Version 1)
Quarter: 2021Q2

REPORT INFORMATION
  Report Type: Spontaneous
  Country: PE (occurrence: PE)
  Receive Date: 20210531
  Receipt Date: 20210531
  Transmission Date: 20210717
  Serious: Yes (Disabling)
  Sender: FDA-Public Use
  Company Number: None

PATIENT
  Age: 28 Year
  Sex: Male
  Weight: 63 kg

DRUGS (3)
  1. EFAVIRENZ. [Suspect]
     Active Substance: EFAVIRENZ
     Indication: HIV INFECTION
     Route: 048
     Dates: start: 20190831
  2. AVONZA (EFAVIRENZ\LAMIVUDINE\TENOFOVIR DISOPROXIL FUMARATE) [Suspect]
     Active Substance: EFAVIRENZ\EMTRICITABINE\TENOFOVIR DISOPROXIL FUMARATE
  3. ATRIPLA [Suspect]
     Active Substance: EFAVIRENZ\EMTRICITABINE\TENOFOVIR DISOPROXIL FUMARATE

REACTIONS (5)
  - Rash macular [None]
  - Dizziness [None]
  - Pruritus [None]
  - Dysphagia [None]
  - Tachycardia [None]

NARRATIVE: CASE EVENT DATE: 20190909
